FAERS Safety Report 21012707 (Version 1)
Quarter: 2022Q2

REPORT INFORMATION
  Report Type: Spontaneous
  Country: US (occurrence: US)
  Receive Date: 20220627
  Receipt Date: 20220627
  Transmission Date: 20220721
  Serious: No
  Sender: FDA-Public Use
  Company Number: US-SA-SAC20220617000970

PATIENT
  Age: 52 Year
  Sex: Male

DRUGS (4)
  1. AUBAGIO [Suspect]
     Active Substance: TERIFLUNOMIDE
     Indication: Multiple sclerosis
     Dosage: 14 MG, QD
     Route: 048
     Dates: start: 20220304
  2. NAPROXEN SODIUM [Concomitant]
     Active Substance: NAPROXEN SODIUM
     Dosage: 500 MG, BID
  3. CHLORHEXIDINE [Concomitant]
     Active Substance: CHLORHEXIDINE
  4. CARBATROL [Concomitant]
     Active Substance: CARBAMAZEPINE

REACTIONS (1)
  - Facial pain [Not Recovered/Not Resolved]
